FAERS Safety Report 9473364 (Version 1)
Quarter: 2013Q3

REPORT INFORMATION
  Report Type: Spontaneous
  Country: US (occurrence: US)
  Receive Date: 20130823
  Receipt Date: 20130823
  Transmission Date: 20140515
  Serious: No
  Sender: FDA-Public Use
  Company Number: US-GALDERMA-US-GDP-12414679

PATIENT
  Sex: Male

DRUGS (1)
  1. METROGEL (METRONIDAZOLE) GEL, 1% [Suspect]
     Indication: SKIN DISORDER
     Route: 061

REACTIONS (2)
  - Rash pustular [Unknown]
  - Off label use [Unknown]
